FAERS Safety Report 24923590 (Version 1)
Quarter: 2025Q1

REPORT INFORMATION
  Report Type: Report from Study
  Country: US (occurrence: US)
  Receive Date: 20250204
  Receipt Date: 20250204
  Transmission Date: 20250409
  Serious: Yes (Hospitalization)
  Sender: ABBVIE
  Company Number: US-ABBVIE-6111329

PATIENT
  Sex: Female

DRUGS (1)
  1. HUMIRA [Suspect]
     Active Substance: ADALIMUMAB
     Indication: Rheumatoid arthritis
     Route: 058
     Dates: start: 20241220

REACTIONS (5)
  - Anaemia [Recovering/Resolving]
  - Hypertension [Recovering/Resolving]
  - Oedema [Recovering/Resolving]
  - Blood potassium increased [Recovering/Resolving]
  - Renal failure [Recovering/Resolving]
